FAERS Safety Report 6230719-1 (Version None)
Quarter: 2009Q2

REPORT INFORMATION
  Report Type: 
  Country: None (occurrence: None)
  Receive Date: 20090616
  Receipt Date: 20070514
  Transmission Date: 20091009
  Serious: Yes (Other)
  Sender: FDA-Public Use
  Company Number: US-ASTRAZENECA-2006UW11237

PATIENT
  Age: 12282 Day
  Sex: Female
  Weight: 113.4 kg

DRUGS (23)
  1. SEROQUEL [Suspect]
     Indication: HALLUCINATION
     Dosage: 25 MG - 100 MG
     Route: 048
     Dates: start: 20010207
  2. SEROQUEL [Suspect]
     Indication: DEPRESSION
     Dosage: 25 MG - 100 MG
     Route: 048
     Dates: start: 20010207
  3. SEROQUEL [Suspect]
     Dosage: 100 MG - 300 MG
     Route: 048
     Dates: start: 20010819
  4. SEROQUEL [Suspect]
     Dosage: 100 MG - 300 MG
     Route: 048
     Dates: start: 20010819
  5. SEROQUEL [Suspect]
     Route: 048
     Dates: start: 20021105
  6. SEROQUEL [Suspect]
     Route: 048
     Dates: start: 20021105
  7. SEROQUEL [Suspect]
     Dosage: 200 MG - 600 MG
     Route: 048
     Dates: start: 20030314
  8. SEROQUEL [Suspect]
     Dosage: 200 MG - 600 MG
     Route: 048
     Dates: start: 20030314
  9. SEROQUEL [Suspect]
     Route: 048
     Dates: start: 20051207
  10. SEROQUEL [Suspect]
     Route: 048
     Dates: start: 20051207
  11. SEROQUEL [Suspect]
     Route: 048
  12. SEROQUEL [Suspect]
     Route: 048
  13. ZYPREXA [Suspect]
     Dosage: 5 MG - 10 MG
     Route: 048
     Dates: start: 19990108, end: 19990220
  14. ABILIFY [Concomitant]
  15. CLOZARIL [Concomitant]
  16. STELAZINE [Concomitant]
     Dosage: 5 MG - 25 MG
     Route: 048
     Dates: start: 20010207
  17. ATIVAN [Concomitant]
     Dosage: 0.5 MG - 1MG
     Route: 048
     Dates: start: 20010207
  18. COGENTIN [Concomitant]
     Dates: start: 20010207
  19. PAXIL [Concomitant]
     Dosage: 10 MG - 40 MG
     Route: 048
     Dates: start: 20010207
  20. BENADRYL [Concomitant]
     Route: 048
     Dates: start: 20010820
  21. RISPERDAL [Concomitant]
     Dosage: 1 - 4 MG
  22. AMBIEN [Concomitant]
     Indication: INSOMNIA
     Route: 048
     Dates: start: 20030316
  23. METFORMIN HYDROCHLORIDE [Concomitant]
     Route: 048
     Dates: start: 20070114

REACTIONS (3)
  - ACETONAEMIA [None]
  - DIABETES MELLITUS [None]
  - PANCREATITIS [None]
